FAERS Safety Report 6415746-3 (Version None)
Quarter: 2009Q4

REPORT INFORMATION
  Report Type: 
  Country: None (occurrence: None)
  Receive Date: 20091022
  Receipt Date: 20050602
  Transmission Date: 20100525
  Serious: Yes (Other)
  Sender: FDA-Public Use
  Company Number: 2009009236

PATIENT
  Age: 35 Year
  Sex: Female
  Weight: 79.3795 kg

DRUGS (4)
  1. ACTIQ [Suspect]
     Indication: MIGRAINE
     Dosage: 600 MCG (600 MCG, 1 IN 1 D), BU
     Route: 002
     Dates: start: 20040101
  2. PRILOSEC /00661201/ (OMEPRAZOLE) [Concomitant]
  3. AMBIEN [Concomitant]
  4. CYMBALTA [Concomitant]

REACTIONS (5)
  - ACCIDENT AT WORK [None]
  - COMPLEX REGIONAL PAIN SYNDROME [None]
  - LIMB INJURY [None]
  - MEDICATION ERROR [None]
  - OFF LABEL USE [None]
